FAERS Safety Report 6548728-1 (Version None)
Quarter: 2010Q1

REPORT INFORMATION
  Report Type: 
  Country: None (occurrence: None)
  Receive Date: 20100124
  Receipt Date: 20091117
  Transmission Date: 20100710
  Serious: No
  Sender: FDA-Public Use
  Company Number: US-ALLERGAN-0914708US

PATIENT
  Sex: Male

DRUGS (1)
  1. RESTASIS [Suspect]
     Indication: DRY EYE
     Dosage: 1 GTT, BID
     Route: 047

REACTIONS (5)
  - APPLICATION SITE PAIN [None]
  - EYE SWELLING [None]
  - FOREIGN BODY SENSATION IN EYES [None]
  - LACRIMATION INCREASED [None]
  - SKIN DISCOLOURATION [None]
